FAERS Safety Report 14550707 (Version 2)
Quarter: 2018Q1

REPORT INFORMATION
  Report Type: Report from Study
  Country: None (occurrence: HU)
  Receive Date: 20180219
  Receipt Date: 20180222
  Transmission Date: 20180509
  Serious: Yes (Death, Hospitalization)
  Sender: FDA-Public Use
  Company Number: HU-ABBVIE-18K-076-2260296-00

PATIENT
  Age: 79 Year
  Sex: Male

DRUGS (7)
  1. TALLITON [Concomitant]
     Active Substance: CARVEDILOL
     Indication: HYPERTENSION
     Dosage: 6.25 MG IN THE EVENING
     Route: 048
  2. TRILEPTAL [Concomitant]
     Active Substance: OXCARBAZEPINE
     Indication: EPILEPSY
     Dosage: 300 MG IN THE MORNING
     Route: 048
     Dates: start: 20160616
  3. STALEVO [Concomitant]
     Active Substance: CARBIDOPA\ENTACAPONE\LEVODOPA
     Indication: PARKINSON^S DISEASE
     Dosage: 1 TABLET IN THE EVENING
     Route: 048
  4. NEO FERRO FOLGAMMA [Concomitant]
     Indication: ANAEMIA
     Dosage: 1 TABLET IN THE MORNING
     Route: 048
     Dates: start: 20161201
  5. PANTOPRAZOLE [Concomitant]
     Active Substance: PANTOPRAZOLE
     Indication: PROPHYLAXIS
     Dosage: 20 MG IN THE MORNING
     Route: 048
  6. DUODOPA [Suspect]
     Active Substance: CARBIDOPA\LEVODOPA
     Indication: PARKINSON^S DISEASE
     Dosage: MD 8.6ML; CD IN THE MORNING 2.6ML/H; CD IN THE EVENING: 1.6 ML/H, ED 1.5ML
     Route: 050
     Dates: start: 20140731, end: 20180210
  7. CLOPIDOGREL [Concomitant]
     Active Substance: CLOPIDOGREL BISULFATE
     Indication: ISCHAEMIC HEART DISEASE PROPHYLAXIS
     Dosage: 75 MG IN THE MORNING
     Route: 048

REACTIONS (7)
  - Somnolence [Not Recovered/Not Resolved]
  - Pneumonia [Unknown]
  - Mental impairment [Not Recovered/Not Resolved]
  - Inflammatory marker increased [Unknown]
  - Parkinson^s disease [Fatal]
  - Cardiopulmonary failure [Fatal]
  - Anaemia [Unknown]

NARRATIVE: CASE EVENT DATE: 2017
